FAERS Safety Report 5742263-6 (Version None)
Quarter: 2008Q2

REPORT INFORMATION
  Report Type: 
  Country: None (occurrence: None)
  Receive Date: 20080519
  Receipt Date: 20080511
  Transmission Date: 20081010
  Serious: Yes (Other)
  Sender: FDA-Public Use
  Company Number: PHHY2008IL07804

PATIENT
  Age: 74 Year
  Sex: Female

DRUGS (3)
  1. TAXOL [Concomitant]
     Indication: OVARIAN CANCER
  2. SANDOSTATIN LAR [Suspect]
     Indication: ACROMEGALY
     Dosage: 30 MG EVERY 28 DAYS
  3. SANDOSTATIN LAR [Suspect]
     Dosage: 40 MG EVERY 28 DAYS

REACTIONS (2)
  - INTERNATIONAL NORMALISED RATIO INCREASED [None]
  - PROTHROMBIN TIME PROLONGED [None]
